FAERS Safety Report 6369433-0 (Version None)
Quarter: 2009Q3

REPORT INFORMATION
  Report Type: 
  Country: None (occurrence: None)
  Receive Date: 20090923
  Receipt Date: 20080124
  Transmission Date: 20100115
  Serious: Yes (Hospitalization)
  Sender: FDA-Public Use
  Company Number: US-ASTRAZENECA-2007UW19659

PATIENT
  Age: 24 Year
  Sex: Female
  Weight: 110.2 kg

DRUGS (17)
  1. SEROQUEL [Suspect]
     Indication: SLEEP DISORDER
     Route: 048
     Dates: start: 20000101, end: 20060101
  2. SEROQUEL [Suspect]
     Indication: AFFECTIVE DISORDER
     Route: 048
     Dates: start: 20000101, end: 20060101
  3. SEROQUEL [Suspect]
     Dosage: 100 MG TO 500 MG
     Route: 048
     Dates: start: 20020401
  4. SEROQUEL [Suspect]
     Dosage: 100 MG TO 500 MG
     Route: 048
     Dates: start: 20020401
  5. ABILIFY [Concomitant]
  6. CLOZARIL [Concomitant]
  7. HALDOL [Concomitant]
  8. RISPERDAL [Concomitant]
     Route: 048
     Dates: start: 20030821
  9. ZYPREXA [Concomitant]
  10. PROZAC [Concomitant]
     Dosage: 20 MG TO 40 MG
     Route: 048
     Dates: start: 20010604
  11. XANAX [Concomitant]
  12. DEPAKOTE ER [Concomitant]
     Indication: SLEEP DISORDER
     Dosage: 1000 MG TO 2550 MG
     Route: 048
     Dates: start: 20010716
  13. VPA [Concomitant]
     Dosage: 300 MG TO 500 MG
     Route: 048
     Dates: start: 20020401
  14. TOPAMAX [Concomitant]
     Route: 048
     Dates: start: 20020814
  15. GEODON [Concomitant]
     Dates: start: 20030821
  16. TRAZODONE [Concomitant]
     Indication: INSOMNIA
     Dosage: 100 MG TO 200 MG
     Route: 048
     Dates: start: 20010706
  17. AMBIEN [Concomitant]
     Route: 048
     Dates: start: 20010716

REACTIONS (11)
  - ANXIETY [None]
  - BIPOLAR DISORDER [None]
  - BIPOLAR I DISORDER [None]
  - DEPRESSION [None]
  - DIABETES MELLITUS [None]
  - MAJOR DEPRESSION [None]
  - OBESITY [None]
  - PERSONALITY DISORDER [None]
  - SCHIZOAFFECTIVE DISORDER [None]
  - SCHIZOPHRENIA [None]
  - TYPE 2 DIABETES MELLITUS [None]
